FAERS Safety Report 25647201 (Version 1)
Quarter: 2025Q3

REPORT INFORMATION
  Report Type: Spontaneous
  Country: US (occurrence: US)
  Receive Date: 20250806
  Receipt Date: 20250806
  Transmission Date: 20251020
  Serious: No
  Sender: ROCHE
  Company Number: US-ROCHE-10000354256

PATIENT
  Sex: Female

DRUGS (9)
  1. XOLAIR PFS [Suspect]
     Active Substance: OMALIZUMAB
     Indication: Asthma
     Dosage: STRENGTH: 75 MG 0.5 ML
     Route: 058
  2. XOLAIR PFS [Suspect]
     Active Substance: OMALIZUMAB
  3. CETIRIZINE ? TAB 10MG [Concomitant]
  4. FISH OIL CAP 1200MG [Concomitant]
  5. LEVOTHYROXIN TAB 75MCG [Concomitant]
  6. LOSARTAN POTASSIUM [Concomitant]
     Active Substance: LOSARTAN POTASSIUM
  7. MONTELUKAST SODIUM [Concomitant]
     Active Substance: MONTELUKAST SODIUM
  8. PANTOPRAZOLE TBE 40MG [Concomitant]
  9. SERTRALINE ? TAB 100MG [Concomitant]

REACTIONS (3)
  - Depression [Unknown]
  - Peripheral swelling [Unknown]
  - Headache [Unknown]
